FAERS Safety Report 22282855 (Version 2)
Quarter: 2023Q2

REPORT INFORMATION
  Report Type: Spontaneous
  Country: FI (occurrence: None)
  Receive Date: 20230504
  Receipt Date: 20230623
  Transmission Date: 20230722
  Serious: Yes (Disabling)
  Sender: FDA-Public Use
  Company Number: 2023A096670

PATIENT
  Age: 23 Year
  Sex: Female

DRUGS (1)
  1. QUETIAPINE FUMARATE [Suspect]
     Active Substance: QUETIAPINE FUMARATE
     Indication: Insomnia
     Route: 048
     Dates: start: 201812, end: 20230103

REACTIONS (16)
  - Pollakiuria [Unknown]
  - Nausea [Unknown]
  - Headache [Unknown]
  - Inflammatory marker increased [Unknown]
  - Mydriasis [Unknown]
  - Visual impairment [Unknown]
  - Performance status decreased [Unknown]
  - Flat affect [Unknown]
  - Head discomfort [Unknown]
  - Cognitive disorder [Unknown]
  - Hallucination, auditory [Unknown]
  - Mental impairment [Unknown]
  - Muscle twitching [Unknown]
  - Vomiting [Unknown]
  - Somnolence [Unknown]
  - Off label use [Unknown]

NARRATIVE: CASE EVENT DATE: 20221228
